FAERS Safety Report 24575980 (Version 1)
Quarter: 2024Q4

REPORT INFORMATION
  Report Type: Spontaneous
  Country: US (occurrence: None)
  Receive Date: 20241101
  Receipt Date: 20241101
  Transmission Date: 20250114
  Serious: No
  Sender: Public
  Company Number: None

PATIENT
  Age: 72 Year
  Sex: Female
  Weight: 58.3 kg

DRUGS (8)
  1. VERZENIO [Suspect]
     Active Substance: ABEMACICLIB
     Indication: Breast cancer female
     Dosage: 100 MG DAILY ORAL
     Route: 048
     Dates: start: 20230128
  2. EXEMESTANE [Concomitant]
     Active Substance: EXEMESTANE
  3. PREDNISONE [Concomitant]
     Active Substance: PREDNISONE
  4. theophylline 300mg er [Concomitant]
  5. VITAMINS [Concomitant]
     Active Substance: VITAMINS
  6. ALBUTEROL SULFATE [Concomitant]
     Active Substance: ALBUTEROL SULFATE
  7. SPIRIVA [Concomitant]
     Active Substance: TIOTROPIUM BROMIDE MONOHYDRATE
  8. SYMBICORT [Concomitant]
     Active Substance: BUDESONIDE\FORMOTEROL FUMARATE DIHYDRATE

REACTIONS (3)
  - Upper respiratory tract infection [None]
  - Nephrolithiasis [None]
  - Intentional dose omission [None]

NARRATIVE: CASE EVENT DATE: 20241016
